FAERS Safety Report 6475161-3 (Version None)
Quarter: 2009Q4

REPORT INFORMATION
  Report Type: 
  Country: None (occurrence: None)
  Receive Date: 20091204
  Receipt Date: 20090713
  Transmission Date: 20100525
  Serious: Yes (Life-Threatening, Hospitalization)
  Sender: FDA-Public Use
  Company Number: US-ELI_LILLY_AND_COMPANY-US200903004436

PATIENT
  Sex: Female

DRUGS (10)
  1. BYETTA [Suspect]
     Dosage: 5 UG, UNKNOWN
     Route: 058
     Dates: start: 20060101, end: 20060101
  2. BYETTA [Suspect]
     Dosage: 10 UG, UNKNOWN
     Route: 058
     Dates: start: 20060101
  3. BYETTA [Suspect]
     Dosage: 5 UG, UNKNOWN
     Route: 058
     Dates: end: 20081001
  4. METFORMIN HCL [Concomitant]
     Indication: DIABETES MELLITUS
     Dosage: 1000 MG, 2/D
  5. NOVOLOG MIX 70/30 [Concomitant]
     Dosage: UNK, 2/D
  6. SIMVASTATIN [Concomitant]
     Indication: BLOOD CHOLESTEROL ABNORMAL
     Dosage: UNK, EACH EVENING
  7. ANTIHYPERTENSIVES [Concomitant]
     Indication: BLOOD PRESSURE
     Dates: end: 20081101
  8. LISINOPRIL [Concomitant]
     Indication: CARDIOVASCULAR EVENT PROPHYLAXIS
     Dosage: 40 MG, DAILY (1/D)
     Dates: start: 20080301
  9. CARVEDILOL [Concomitant]
     Indication: CARDIOVASCULAR EVENT PROPHYLAXIS
     Dosage: 12.5 MG, 2/D
     Dates: start: 20080505
  10. SYMLIN [Concomitant]
     Indication: DIABETES MELLITUS
     Dosage: 10 U, 3/D
     Dates: start: 20081001

REACTIONS (7)
  - BLOOD GLUCOSE DECREASED [None]
  - BLOOD PRESSURE INCREASED [None]
  - CARDIOMYOPATHY [None]
  - LOSS OF CONSCIOUSNESS [None]
  - OFF LABEL USE [None]
  - RESPIRATORY ARREST [None]
  - STRESS AT WORK [None]
